FAERS Safety Report 7736175-6 (Version None)
Quarter: 2011Q3

REPORT INFORMATION
  Report Type: 
  Country: None (occurrence: None)
  Receive Date: 20110908
  Receipt Date: 20110830
  Transmission Date: 20111222
  Serious: Yes (Hospitalization, Other)
  Sender: FDA-Public Use
  Company Number: US-US-EMD SERONO, INC.-7001666

PATIENT
  Sex: Female

DRUGS (5)
  1. TRILEPTAL [Concomitant]
     Indication: CONVULSION
     Dates: end: 20100101
  2. REBIF [Suspect]
     Indication: MULTIPLE SCLEROSIS
     Route: 058
     Dates: start: 20090828
  3. KEPPRA [Concomitant]
     Indication: CLONUS
  4. TRILEPTAL [Concomitant]
     Dates: start: 20100101
  5. INSULIN [Concomitant]
     Indication: BLOOD GLUCOSE INCREASED

REACTIONS (9)
  - BLOOD GLUCOSE INCREASED [None]
  - FALL [None]
  - FEELING DRUNK [None]
  - HEAD INJURY [None]
  - DIARRHOEA [None]
  - AMMONIA INCREASED [None]
  - MOBILITY DECREASED [None]
  - CONVULSION [None]
  - URINARY TRACT INFECTION [None]
